FAERS Safety Report 4978345-6 (Version None)
Quarter: 2006Q1

REPORT INFORMATION
  Report Type: 
  Country: None (occurrence: None)
  Receive Date: 20060217
  Receipt Date: 20050804
  Transmission Date: 20060701
  Serious: Yes (Hospitalization)
  Sender: FDA-Public Use
  Company Number: MEST00205002506

PATIENT
  Age: 40 Year
  Sex: Male

DRUGS (2)
  1. MESALAMINE [Suspect]
     Indication: COLITIS ULCERATIVE
     Dosage: 3000 MILLIGRAM(S) DAILY ORAL DAILY DOSE: 3000 MILLIGRAM(S)
     Route: 048
     Dates: start: 20000201, end: 20000101
  2. PREDNISOLONE [Concomitant]

REACTIONS (1)
  - PANCREATITIS [None]
